FAERS Safety Report 7352077-1 (Version None)
Quarter: 2011Q1

REPORT INFORMATION
  Report Type: 
  Country: None (occurrence: None)
  Receive Date: 20110315
  Receipt Date: 20110216
  Transmission Date: 20110831
  Serious: No
  Sender: FDA-Public Use
  Company Number: US-B.I. PHARMACEUTICALS,INC./RIDGEFIELD-2011-BP-03657BP

PATIENT
  Age: 80 Year
  Sex: Female

DRUGS (4)
  1. BLOOD PRESSURE MEDICATION [Concomitant]
     Indication: HYPERTENSION
     Route: 048
  2. A SLEW OF VITAMINS [Concomitant]
     Indication: PROPHYLAXIS
     Route: 048
  3. THYROID MEDICATION [Concomitant]
     Indication: HYPOTHYROIDISM
     Route: 048
  4. SPIRIVA [Suspect]
     Indication: CHRONIC OBSTRUCTIVE PULMONARY DISEASE
     Dosage: 18 MCG
     Route: 055
     Dates: start: 20100101

REACTIONS (1)
  - DYSPNOEA [None]
